FAERS Safety Report 4800282-8 (Version None)
Quarter: 2005Q4

REPORT INFORMATION
  Report Type: 
  Country: None (occurrence: None)
  Receive Date: 20051017
  Receipt Date: 20051011
  Transmission Date: 20060501
  Serious: Yes (Hospitalization, Other)
  Sender: FDA-Public Use
  Company Number: US-BRISTOL-MYERS SQUIBB COMPANY-13141627

PATIENT
  Age: 52 Year
  Sex: Male

DRUGS (2)
  1. ERBITUX [Suspect]
     Indication: COLORECTAL CANCER
     Route: 042
  2. IRINOTECAN [Concomitant]
     Indication: COLORECTAL CANCER

REACTIONS (2)
  - DIARRHOEA [None]
  - PNEUMONIA [None]
